FAERS Safety Report 5066994-9 (Version None)
Quarter: 2006Q3

REPORT INFORMATION
  Report Type: 
  Country: None (occurrence: None)
  Receive Date: 20060801
  Receipt Date: 20060727
  Transmission Date: 20061208
  Serious: Yes (Hospitalization)
  Sender: FDA-Public Use
  Company Number: DE-SANOFI-SYNTHELABO-F01200601752

PATIENT
  Sex: Female

DRUGS (3)
  1. AVASTIN [Suspect]
     Dosage: 517 MG 1 X PER 3 WEEK
     Route: 042
     Dates: start: 20060223, end: 20060223
  2. CAPECITABINE [Suspect]
     Dosage: UNK
     Route: 048
     Dates: start: 20060223, end: 20060223
  3. OXALIPLATIN [Suspect]
     Dosage: UNK
     Route: 042
     Dates: start: 20060223, end: 20060223

REACTIONS (1)
  - HYPERVENTILATION [None]
